FAERS Safety Report 4509505-6 (Version None)
Quarter: 2004Q4

REPORT INFORMATION
  Report Type: 
  Country: None (occurrence: None)
  Receive Date: 20041119
  Receipt Date: 20041101
  Transmission Date: 20050328
  Serious: Yes (Hospitalization, Other)
  Sender: FDA-Public Use
  Company Number: USA040156731

PATIENT
  Age: 48 Year
  Sex: Female

DRUGS (8)
  1. PROZAC [Suspect]
     Indication: DEPRESSION
     Dosage: 40 MG
     Dates: start: 19900501, end: 20030801
  2. FLUOXETINE [Concomitant]
  3. KLONOPIN [Concomitant]
  4. LEXAPRO [Concomitant]
  5. SERZONE [Concomitant]
  6. XANAX [Concomitant]
  7. TOPAMAX [Concomitant]
  8. MULTIVITAMIN [Concomitant]

REACTIONS (17)
  - ABNORMAL BEHAVIOUR [None]
  - AGITATION [None]
  - ANGER [None]
  - ANORECTAL DISORDER [None]
  - ARTHRITIS [None]
  - BACK PAIN [None]
  - CRYING [None]
  - DRUG INEFFECTIVE [None]
  - FAECAL INCONTINENCE [None]
  - INSOMNIA [None]
  - INTENTIONAL SELF-INJURY [None]
  - MEMORY IMPAIRMENT [None]
  - PHARMACEUTICAL PRODUCT COMPLAINT [None]
  - RIB FRACTURE [None]
  - SKIN LACERATION [None]
  - SUICIDE ATTEMPT [None]
  - THERAPEUTIC RESPONSE UNEXPECTED WITH DRUG SUBSTITUTION [None]
